FAERS Safety Report 5120919-6 (Version None)
Quarter: 2006Q4

REPORT INFORMATION
  Report Type: 
  Country: None (occurrence: None)
  Receive Date: 20061005
  Receipt Date: 20060804
  Transmission Date: 20070319
  Serious: Yes (Other)
  Sender: FDA-Public Use
  Company Number: US-ROCHE-458376

PATIENT
  Sex: Female

DRUGS (4)
  1. XELODA [Suspect]
     Indication: BREAST CANCER
     Route: 048
     Dates: start: 20051115
  2. XELODA [Suspect]
     Route: 048
     Dates: start: 20030615
  3. NAVELBINE [Suspect]
     Indication: BREAST CANCER
     Route: 041
     Dates: start: 20051115
  4. MULTIVITAMIN NOS [Concomitant]
     Indication: ANTIDEPRESSANT THERAPY
     Route: 048
     Dates: start: 20030615

REACTIONS (5)
  - DEPRESSION [None]
  - DISEASE RECURRENCE [None]
  - LYMPHOMA [None]
  - METASTASES TO LYMPH NODES [None]
  - NEOPLASM MALIGNANT [None]
